FAERS Safety Report 7129787-4 (Version None)
Quarter: 2010Q4

REPORT INFORMATION
  Report Type: 
  Country: None (occurrence: None)
  Receive Date: 20101130
  Receipt Date: 20101123
  Transmission Date: 20110411
  Serious: Yes (Congenital Anomaly)
  Sender: FDA-Public Use
  Company Number: FR-ABBOTT-10P-056-0687411-00

PATIENT
  Age: 0 Day
  Sex: Male
  Weight: 4.01 kg

DRUGS (2)
  1. DEPAKENE [Suspect]
     Indication: DRUG EXPOSURE DURING PREGNANCY
     Route: 064
  2. DEPAKENE [Suspect]
     Route: 063

REACTIONS (4)
  - DRUG EXPOSURE DURING PREGNANCY [None]
  - DRUG EXPOSURE VIA BREAST MILK [None]
  - DYSMORPHISM [None]
  - HYPOTONIA NEONATAL [None]
